FAERS Safety Report 17837263 (Version 1)
Quarter: 2020Q2

REPORT INFORMATION
  Report Type: Spontaneous
  Country: CA (occurrence: CA)
  Receive Date: 20200528
  Receipt Date: 20200528
  Transmission Date: 20200714
  Serious: Yes (Other)
  Sender: FDA-Public Use
  Company Number: CA-ASTRAZENECA-2020SE69296

PATIENT
  Age: 40 Year
  Sex: Female

DRUGS (19)
  1. ATROVENT [Suspect]
     Active Substance: IPRATROPIUM BROMIDE
     Route: 065
  2. ARNUITY ELLIPTA [Suspect]
     Active Substance: FLUTICASONE FUROATE
     Route: 065
  3. ZENHALE [Suspect]
     Active Substance: FORMOTEROL FUMARATE\MOMETASONE FUROATE
     Route: 065
  4. TRAZODONE [Suspect]
     Active Substance: TRAZODONE HYDROCHLORIDE
     Route: 065
  5. ACLIDINIUM BROMIDE. [Suspect]
     Active Substance: ACLIDINIUM BROMIDE
     Route: 055
  6. SINGULAIR [Suspect]
     Active Substance: MONTELUKAST SODIUM
     Route: 065
  7. GLYCOPYRRONIUM BROMIDE [Suspect]
     Active Substance: GLYCOPYRRONIUM
     Route: 065
  8. NOVORAPID [Suspect]
     Active Substance: INSULIN ASPART
     Route: 058
  9. ACETYLSALICYLIC ACID [Concomitant]
     Active Substance: ASPIRIN
  10. SALBUTAMOL [Suspect]
     Active Substance: ALBUTEROL
     Route: 065
  11. INDACATEROL MALEATE [Suspect]
     Active Substance: INDACATEROL MALEATE
     Route: 048
  12. PULMICORT TURBUHALER [Suspect]
     Active Substance: BUDESONIDE
     Route: 055
  13. EZETIMIBE. [Concomitant]
     Active Substance: EZETIMIBE
  14. PANTOPRAZOLE MAGNESIUM [Concomitant]
     Active Substance: PANTOPRAZOLE MAGNESIUM
  15. REACTINE [Concomitant]
  16. ALVESCO [Suspect]
     Active Substance: CICLESONIDE
     Route: 055
  17. SPIRIVA [Suspect]
     Active Substance: TIOTROPIUM BROMIDE MONOHYDRATE
     Route: 065
  18. FORMOTEROL FUMARATE [Suspect]
     Active Substance: FORMOTEROL FUMARATE
     Route: 065
  19. ROSUVASTATIN. [Concomitant]
     Active Substance: ROSUVASTATIN

REACTIONS (25)
  - Depression [Unknown]
  - Pneumonia [Unknown]
  - Condition aggravated [Unknown]
  - Type 2 diabetes mellitus [Unknown]
  - Blood test abnormal [Unknown]
  - Dyslipidaemia [Unknown]
  - Gastrooesophageal reflux disease [Unknown]
  - Restrictive pulmonary disease [Unknown]
  - Asthma [Unknown]
  - Hyper IgE syndrome [Unknown]
  - Sleep apnoea syndrome [Unknown]
  - Polycystic ovaries [Unknown]
  - Eczema [Unknown]
  - Abscess [Unknown]
  - Dyspnoea [Unknown]
  - Hypertension [Unknown]
  - Skin lesion [Unknown]
  - Cough [Unknown]
  - Coronary artery disease [Unknown]
  - Myocardial infarction [Unknown]
  - Obstructive airways disorder [Unknown]
  - Restless legs syndrome [Unknown]
  - Weight decreased [Unknown]
  - Pruritus [Unknown]
  - Drug ineffective [Unknown]
